FAERS Safety Report 9794885 (Version 1)
Quarter: 2014Q1

REPORT INFORMATION
  Report Type: Spontaneous
  Country: US (occurrence: US)
  Receive Date: 20140102
  Receipt Date: 20140102
  Transmission Date: 20141002
  Serious: No
  Sender: FDA-Public Use
  Company Number: US-JHP PHARMACEUTICALS, LLC-JHP201300364

PATIENT
  Sex: Male

DRUGS (1)
  1. APLISOL DIAGNOSTIC ANTIGEN [Suspect]
     Indication: WRONG DRUG ADMINISTERED
     Dosage: UNK, SINGLE
     Route: 030
     Dates: start: 20130610, end: 20130610

REACTIONS (4)
  - Wrong drug administered [Recovered/Resolved]
  - Incorrect route of drug administration [Recovered/Resolved]
  - Injection site reaction [Unknown]
  - Dizziness [Unknown]
